FAERS Safety Report 10518189 (Version 11)
Quarter: 2020Q3

REPORT INFORMATION
  Report Type: Spontaneous
  Country: IE (occurrence: IE)
  Receive Date: 20141015
  Receipt Date: 20200708
  Transmission Date: 20201102
  Serious: Yes (Life-Threatening, Other)
  Sender: FDA-Public Use
  Company Number: IE-ALEXION PHARMACEUTICALS INC.-A201403897

PATIENT
  Age: 7 Year
  Sex: Female
  Weight: 26.3 kg

DRUGS (3)
  1. SOLIRIS [Suspect]
     Active Substance: ECULIZUMAB
     Dosage: 600 MG, Q2W
     Route: 042
     Dates: start: 201308
  2. SOLIRIS [Suspect]
     Active Substance: ECULIZUMAB
     Indication: ATYPICAL HAEMOLYTIC URAEMIC SYNDROME
     Dosage: 300 MG, 1 DOSE TWICE A WEEK
     Route: 042
     Dates: start: 20100805
  3. SOLIRIS [Suspect]
     Active Substance: ECULIZUMAB
     Dosage: 300 MG, Q2W
     Route: 065
     Dates: start: 201008

REACTIONS (11)
  - Neutrophilia [Recovered/Resolved]
  - Rash macular [Unknown]
  - Tonsillitis [Unknown]
  - Platelet count decreased [Unknown]
  - Pyrexia [Unknown]
  - Vaccination failure [Unknown]
  - C-reactive protein increased [Recovered/Resolved]
  - Meningococcal sepsis [Unknown]
  - Viral infection [Unknown]
  - Total complement activity decreased [Unknown]
  - Headache [Unknown]

NARRATIVE: CASE EVENT DATE: 20130110
